FAERS Safety Report 8525236-X (Version None)
Quarter: 2012Q3

REPORT INFORMATION
  Report Type: 
  Country: None (occurrence: None)
  Receive Date: 20120720
  Receipt Date: 20120711
  Transmission Date: 20120928
  Serious: Yes (Other)
  Sender: FDA-Public Use
  Company Number: IT-ABBOTT-09P-083-0594925-00

PATIENT
  Sex: Female
  Weight: 48 kg

DRUGS (3)
  1. METHOTREXATE [Concomitant]
     Indication: ARTHRITIS
     Dates: start: 20040401, end: 20100201
  2. HUMIRA [Suspect]
     Indication: CROHN'S DISEASE
     Route: 058
     Dates: start: 20081127, end: 20090109
  3. HUMIRA [Suspect]

REACTIONS (1)
  - PHLEBITIS [None]
